FAERS Safety Report 8502858-3 (Version None)
Quarter: 2012Q3

REPORT INFORMATION
  Report Type: 
  Country: None (occurrence: None)
  Receive Date: 20120705
  Receipt Date: 20120705
  Transmission Date: 20120928
  Serious: Yes (Other)
  Sender: FDA-Public Use
  Company Number: None

PATIENT
  Sex: Female

DRUGS (2)
  1. PRAVASTATIN [Suspect]
     Indication: BLOOD CHOLESTEROL
     Dosage: 20MG ONCE A DAY PO
     Route: 048
  2. CUMADIN, BLOOD PRESSURE [Concomitant]

REACTIONS (7)
  - MYALGIA [None]
  - RASH [None]
  - RHINORRHOEA [None]
  - DIZZINESS [None]
  - ODYNOPHAGIA [None]
  - DYSPNOEA [None]
  - ASTHENIA [None]
